FAERS Safety Report 13102783 (Version 1)
Quarter: 2017Q1

REPORT INFORMATION
  Report Type: Spontaneous
  Country: DE (occurrence: DE)
  Receive Date: 20170110
  Receipt Date: 20170110
  Transmission Date: 20170428
  Serious: Yes (Hospitalization)
  Sender: FDA-Public Use
  Company Number: DE-009507513-1701DEU000725

PATIENT
  Sex: Female

DRUGS (1)
  1. ESMERON 10 MG/ML [Suspect]
     Active Substance: ROCURONIUM BROMIDE

REACTIONS (1)
  - Infusion site extravasation [Recovered/Resolved]
